FAERS Safety Report 23493466 (Version 1)
Quarter: 2024Q1

REPORT INFORMATION
  Report Type: Spontaneous
  Country: US (occurrence: US)
  Receive Date: 20240207
  Receipt Date: 20240207
  Transmission Date: 20240410
  Serious: Yes (Other)
  Sender: FDA-Public Use
  Company Number: US-SA-SAC20240205001927

PATIENT

DRUGS (2)
  1. DUPIXENT [Suspect]
     Active Substance: DUPILUMAB
  2. CIBINQO [Suspect]
     Active Substance: ABROCITINIB
     Dosage: 1 DF, QD
     Route: 048

REACTIONS (1)
  - Skin cancer [Unknown]
